FAERS Safety Report 6051318-0 (Version None)
Quarter: 2009Q1

REPORT INFORMATION
  Report Type: 
  Country: None (occurrence: None)
  Receive Date: 20090121
  Receipt Date: 20090121
  Transmission Date: 20090719
  Serious: Yes (Hospitalization)
  Sender: FDA-Public Use
  Company Number: None

PATIENT
  Age: 87 Year
  Sex: Male
  Weight: 67 kg

DRUGS (22)
  1. BONIVA [Suspect]
     Indication: OSTEOPOROSIS
     Dosage: 150 MG MONTHLY PO
     Route: 048
  2. ADVAIR DISKUS 100/50 [Concomitant]
  3. AMBIEN [Concomitant]
  4. SYNTHROID [Concomitant]
  5. MULTIVITAMIN [Concomitant]
  6. OYSTER SHELL CALCIUM [Concomitant]
  7. PREVACID [Concomitant]
  8. ASPIRIN [Concomitant]
  9. DIGOXIN [Concomitant]
  10. DUONEB [Concomitant]
  11. ALBUTEROL SULATE [Concomitant]
  12. VICODIN [Concomitant]
  13. GLUCOTROL XL [Concomitant]
  14. XANAX [Concomitant]
  15. REGLAN [Concomitant]
  16. DETROL LA [Concomitant]
  17. VIT B12 [Concomitant]
  18. VIT E [Concomitant]
  19. HYDROCHLOROTHIAZIDE [Concomitant]
  20. COLACE [Concomitant]
  21. MIRALAX [Concomitant]
  22. SIMETHICONE [Concomitant]

REACTIONS (4)
  - DEHYDRATION [None]
  - HYPOPHAGIA [None]
  - OESOPHAGITIS ULCERATIVE [None]
  - PAIN [None]
